FAERS Safety Report 10306037 (Version 3)
Quarter: 2014Q4

REPORT INFORMATION
  Report Type: Spontaneous
  Country: CA (occurrence: None)
  Receive Date: 20140711
  Receipt Date: 20141016
  Transmission Date: 20150528
  Serious: Yes (Other)
  Sender: FDA-Public Use
  Company Number: 2014-002032

PATIENT
  Age: 56 Year
  Sex: Female
  Weight: 62 kg

DRUGS (17)
  1. PREDNISONE. [Suspect]
     Active Substance: PREDNISONE
  2. DIPHENHYDRAMINE HYDROCHLORIDE. [Concomitant]
     Active Substance: DIPHENHYDRAMINE HYDROCHLORIDE
  3. RAMIPRIL. [Suspect]
     Active Substance: RAMIPRIL
     Route: 048
  4. TRIMETHOPRIM. [Concomitant]
     Active Substance: TRIMETHOPRIM
  5. SULFAMETHOXAZOLE [Concomitant]
     Active Substance: SULFAMETHOXAZOLE
  6. VITAMIN B12 /00056201/ (CYANOCOBALAMIN) [Concomitant]
  7. DOCOSAHEXANOIC ACID W/EICOSAPENTAENOIC ACID (DOCOSAHEXAENOIC ACID, EICOSAPENTAENOIC ACID) [Concomitant]
  8. ARANESP [Concomitant]
     Active Substance: DARBEPOETIN ALFA
  9. TRAMADOL [Concomitant]
     Active Substance: TRAMADOL
  10. ACTONEL [Suspect]
     Active Substance: RISEDRONATE SODIUM
     Route: 048
  11. ZOPICLONE [Concomitant]
     Active Substance: ZOPICLONE
  12. METHYLPREDNISOLONE. [Concomitant]
     Active Substance: METHYLPREDNISOLONE
  13. LOSARTAN POTASSIUM. [Suspect]
     Active Substance: LOSARTAN POTASSIUM
     Route: 048
  14. RITUXAN [Suspect]
     Active Substance: RITUXIMAB
     Route: 042
  15. TRAMACET (PARACETAMOL, TRAMADOL HYDROCHLORIDE) [Concomitant]
  16. ACETAMINOPHEN (PARACETAMOL) [Concomitant]
     Active Substance: ACETAMINOPHEN
  17. CELLCEPT [Suspect]
     Active Substance: MYCOPHENOLATE MOFETIL\MYCOPHENOLATE MOFETIL HYDROCHLORIDE
     Route: 048

REACTIONS (11)
  - Insomnia [None]
  - Palpitations [None]
  - Hypotension [None]
  - Malaise [None]
  - Lupus nephritis [None]
  - Vomiting [None]
  - Abdominal pain upper [None]
  - Laboratory test abnormal [None]
  - Condition aggravated [None]
  - Drug ineffective [None]
  - Headache [None]

NARRATIVE: CASE EVENT DATE: 20120705
